FAERS Safety Report 25056764 (Version 2)
Quarter: 2025Q1

REPORT INFORMATION
  Report Type: Report from Study
  Country: US (occurrence: US)
  Receive Date: 20250310
  Receipt Date: 20250313
  Transmission Date: 20250408
  Serious: Yes (Other)
  Sender: ALEXION PHARMACEUTICALS
  Company Number: US-AstraZeneca-CH-00822615A

PATIENT

DRUGS (1)
  1. ANIFROLUMAB [Suspect]
     Active Substance: ANIFROLUMAB
     Route: 065

REACTIONS (11)
  - Sjogren^s syndrome [Unknown]
  - Pyrexia [Unknown]
  - Cystitis interstitial [Unknown]
  - Depression [Unknown]
  - Condition aggravated [Unknown]
  - Fatigue [Unknown]
  - Stomatitis [Unknown]
  - Arthritis [Unknown]
  - Photosensitivity reaction [Unknown]
  - Mouth ulceration [Unknown]
  - Raynaud^s phenomenon [Unknown]
